FAERS Safety Report 8328864-X (Version None)
Quarter: 2012Q2

REPORT INFORMATION
  Report Type: 
  Country: None (occurrence: None)
  Receive Date: 20120502
  Receipt Date: 20100916
  Transmission Date: 20120825
  Serious: No
  Sender: FDA-Public Use
  Company Number: US-TEVA-2010004936

PATIENT
  Sex: Male

DRUGS (1)
  1. NUVIGIL [Suspect]
     Indication: CIRCADIAN RHYTHM SLEEP DISORDER
     Dosage: 150 MILLIGRAM;
     Route: 048

REACTIONS (3)
  - PSYCHOTIC DISORDER [None]
  - INSOMNIA [None]
  - DEPRESSION [None]
